FAERS Safety Report 8506493-2 (Version None)
Quarter: 2012Q3

REPORT INFORMATION
  Report Type: 
  Country: None (occurrence: None)
  Receive Date: 20120706
  Receipt Date: 20120706
  Transmission Date: 20120928
  Serious: Yes (Hospitalization)
  Sender: FDA-Public Use
  Company Number: None

PATIENT
  Age: 78 Year
  Sex: Female

DRUGS (7)
  1. CLONIDINE [Concomitant]
  2. REVLIMID [Suspect]
     Indication: MULTIPLE MYELOMA
     Dosage: 15 MG DAILY X 21/28 DAYS BY MOUTH
     Route: 048
     Dates: start: 20120424
  3. ASPIRIN [Concomitant]
  4. ERGOCALCIFEROL [Concomitant]
  5. CYCLOPHOSPHAMIDE [Concomitant]
  6. METOPROLOL TARTRATE [Concomitant]
  7. PREDNISONE [Concomitant]

REACTIONS (5)
  - FLUID OVERLOAD [None]
  - ASTHENIA [None]
  - PYREXIA [None]
  - DYSPNOEA [None]
  - TRANSFUSION RELATED COMPLICATION [None]
